FAERS Safety Report 23299756 (Version 6)
Quarter: 2024Q2

REPORT INFORMATION
  Report Type: Report from Study
  Country: US (occurrence: US)
  Receive Date: 20231215
  Receipt Date: 20240618
  Transmission Date: 20240716
  Serious: Yes (Other)
  Sender: FDA-Public Use
  Company Number: US-ABBVIE-5535783

PATIENT
  Sex: Female

DRUGS (6)
  1. RINVOQ [Suspect]
     Active Substance: UPADACITINIB
     Indication: Rheumatoid arthritis
     Route: 048
     Dates: start: 20220623
  2. RINVOQ [Suspect]
     Active Substance: UPADACITINIB
     Indication: Rheumatoid arthritis
     Dosage: LAST ADMIN DATE JUN 2022
     Route: 048
     Dates: start: 20220616
  3. RINVOQ [Suspect]
     Active Substance: UPADACITINIB
     Indication: Rheumatoid arthritis
     Route: 048
     Dates: start: 20220105
  4. RINVOQ [Suspect]
     Active Substance: UPADACITINIB
     Indication: Rheumatoid arthritis
     Route: 048
  5. OFEV [Suspect]
     Active Substance: NINTEDANIB
     Indication: Pulmonary fibrosis
     Route: 065
  6. ENBREL [Concomitant]
     Active Substance: BENZYL ALCOHOL\ETANERCEPT
     Indication: Rheumatoid arthritis
     Route: 065

REACTIONS (17)
  - Blindness [Not Recovered/Not Resolved]
  - Arthritis [Recovering/Resolving]
  - Pain [Recovering/Resolving]
  - Gastrointestinal disorder [Unknown]
  - Cough [Unknown]
  - Pulmonary fibrosis [Recovering/Resolving]
  - Lung disorder [Not Recovered/Not Resolved]
  - Inflammation [Recovering/Resolving]
  - Dysuria [Unknown]
  - Oxygen saturation abnormal [Not Recovered/Not Resolved]
  - Decreased appetite [Not Recovered/Not Resolved]
  - Blood pressure abnormal [Unknown]
  - Feeling abnormal [Not Recovered/Not Resolved]
  - Cataract [Recovering/Resolving]
  - Visual impairment [Not Recovered/Not Resolved]
  - Blood triglycerides increased [Unknown]
  - pH urine increased [Unknown]

NARRATIVE: CASE EVENT DATE: 20220101
